FAERS Safety Report 9797792 (Version 3)
Quarter: 2014Q1

REPORT INFORMATION
  Report Type: Report from Study
  Country: US (occurrence: US)
  Receive Date: 20140106
  Receipt Date: 20140129
  Transmission Date: 20141002
  Serious: Yes (Hospitalization)
  Sender: FDA-Public Use
  Company Number: US-JNJFOC-20131217775

PATIENT
  Age: 19 Year
  Sex: Female
  Weight: 52.16 kg

DRUGS (4)
  1. REMICADE [Suspect]
     Indication: INFLAMMATORY BOWEL DISEASE
     Route: 042
     Dates: start: 20110805, end: 20120725
  2. CIMZIA [Concomitant]
     Route: 065
     Dates: start: 20121221, end: 201304
  3. HUMIRA [Concomitant]
     Route: 065
     Dates: start: 20130509
  4. ORTHO TRI CYCLEN LO [Concomitant]
     Route: 065

REACTIONS (1)
  - Granulomatous liver disease [Recovered/Resolved]
